FAERS Safety Report 17135366 (Version 2)
Quarter: 2020Q2

REPORT INFORMATION
  Report Type: Spontaneous
  Country: US (occurrence: US)
  Receive Date: 20191210
  Receipt Date: 20200624
  Transmission Date: 20200713
  Serious: No
  Sender: FDA-Public Use
  Company Number: US-PFIZER INC-2019531413

PATIENT
  Age: 83 Year
  Sex: Female

DRUGS (12)
  1. MORPHINE [Concomitant]
     Active Substance: MORPHINE
     Dosage: UNK
  2. MIRALAX [Concomitant]
     Active Substance: POLYETHYLENE GLYCOL 3350
     Dosage: UNK
  3. NIFEDIPINE. [Concomitant]
     Active Substance: NIFEDIPINE
     Dosage: UNK
  4. LISINOPRIL. [Concomitant]
     Active Substance: LISINOPRIL
     Dosage: UNK
  5. IBRANCE [Suspect]
     Active Substance: PALBOCICLIB
     Indication: BREAST CANCER FEMALE
     Dosage: 75 MG, CYCLIC (DAILY X21 DAYS,7 DAYS OFF)
     Route: 048
     Dates: start: 201601
  6. IBRANCE [Suspect]
     Active Substance: PALBOCICLIB
     Dosage: UNK
     Dates: start: 20170107, end: 20191016
  7. FLUZONE [FLUCONAZOLE] [Concomitant]
     Active Substance: FLUCONAZOLE
     Dosage: UNK
  8. PAROXETINE. [Concomitant]
     Active Substance: PAROXETINE
     Dosage: UNK
  9. COLACE [Concomitant]
     Active Substance: DOCUSATE SODIUM
     Dosage: UNK
  10. ATENOLOL. [Concomitant]
     Active Substance: ATENOLOL
     Dosage: UNK
  11. IBRANCE [Suspect]
     Active Substance: PALBOCICLIB
     Dosage: 75 MG, CYCLIC (DAILY FOR 21 OUT OF 28 DAYS)
     Route: 048
     Dates: start: 20191030, end: 20191113
  12. FIBER [Concomitant]
     Active Substance: PSYLLIUM HUSK
     Dosage: UNK

REACTIONS (2)
  - Blood count abnormal [Unknown]
  - Tooth infection [Unknown]

NARRATIVE: CASE EVENT DATE: 2019
